FAERS Safety Report 4760197-0 (Version None)
Quarter: 2005Q3

REPORT INFORMATION
  Report Type: 
  Country: None (occurrence: None)
  Receive Date: 20050902
  Receipt Date: 20050823
  Transmission Date: 20060218
  Serious: Yes (Hospitalization, Other)
  Sender: FDA-Public Use
  Company Number: GB-JNJFOC-20050805678

PATIENT
  Age: 79 Year
  Sex: Female

DRUGS (8)
  1. TRAMADOL HCL [Suspect]
  2. PARACETAMOL [Concomitant]
     Dosage: UNKNOWN
  3. INDAPAMIDE [Concomitant]
  4. ATENOLOL [Concomitant]
     Indication: HYPERTENSION
  5. VALSARTAN [Concomitant]
     Indication: HYPERTENSION
  6. TIAPROFENIC ACID [Concomitant]
  7. ONDANSETRON [Concomitant]
     Indication: VOMITING
  8. ONDANSETRON [Concomitant]
     Indication: NAUSEA

REACTIONS (3)
  - CHEST PAIN [None]
  - GRAND MAL CONVULSION [None]
  - HYPONATRAEMIA [None]
